FAERS Safety Report 24808190 (Version 1)
Quarter: 2025Q1

REPORT INFORMATION
  Report Type: Spontaneous
  Country: MX (occurrence: MX)
  Receive Date: 20250106
  Receipt Date: 20250106
  Transmission Date: 20250408
  Serious: Yes (Other)
  Sender: NOVO NORDISK
  Company Number: MX-NOVOPROD-1344126

PATIENT
  Age: 40 Year
  Sex: Female
  Weight: 89 kg

DRUGS (5)
  1. SAXENDA [Suspect]
     Active Substance: LIRAGLUTIDE
     Dosage: 2.4 MG, QD(RESUMED)
     Route: 058
     Dates: start: 202411, end: 20241223
  2. SAXENDA [Suspect]
     Active Substance: LIRAGLUTIDE
     Indication: Overweight
     Route: 058
     Dates: start: 202407
  3. SAXENDA [Suspect]
     Active Substance: LIRAGLUTIDE
     Dosage: 2.4 MG, QD
     Route: 058
     Dates: start: 202408
  4. SAXENDA [Suspect]
     Active Substance: LIRAGLUTIDE
     Route: 058
  5. SAXENDA [Suspect]
     Active Substance: LIRAGLUTIDE
     Indication: Insulin resistance
     Route: 058

REACTIONS (1)
  - Colitis [Recovered/Resolved]

NARRATIVE: CASE EVENT DATE: 20241101
